FAERS Safety Report 6802583-0 (Version None)
Quarter: 2010Q2

REPORT INFORMATION
  Report Type: 
  Country: None (occurrence: None)
  Receive Date: 20100628
  Receipt Date: 20100614
  Transmission Date: 20101027
  Serious: Yes (Hospitalization)
  Sender: FDA-Public Use
  Company Number: CA-JNJFOC-20081100117

PATIENT
  Sex: Female

DRUGS (4)
  1. REMICADE [Suspect]
     Indication: CROHN'S DISEASE
     Route: 042
  2. METHOTREXATE [Concomitant]
  3. BENADRYL [Concomitant]
     Indication: PREMEDICATION
     Route: 048
  4. TYLENOL [Concomitant]
     Indication: PREMEDICATION
     Route: 048

REACTIONS (1)
  - PNEUMONIA LEGIONELLA [None]
